FAERS Safety Report 5428996-X (Version None)
Quarter: 2007Q3

REPORT INFORMATION
  Report Type: 
  Country: None (occurrence: None)
  Receive Date: 20070829
  Receipt Date: 20060705
  Transmission Date: 20080115
  Serious: No
  Sender: FDA-Public Use
  Company Number: A0611170A

PATIENT

DRUGS (2)
  1. MALARONE [Suspect]
     Indication: MALARIA
     Route: 048
  2. NO CONCURRENT MEDICATION [Concomitant]

REACTIONS (2)
  - DRUG INEFFECTIVE [None]
  - MALARIA [None]
